FAERS Safety Report 24558053 (Version 2)
Quarter: 2024Q4

REPORT INFORMATION
  Report Type: Spontaneous
  Country: US (occurrence: US)
  Receive Date: 20241028
  Receipt Date: 20241126
  Transmission Date: 20250114
  Serious: No
  Sender: NOVARTIS
  Company Number: US-002147023-NVSC2024US209431

PATIENT
  Sex: Female
  Weight: 48 kg

DRUGS (1)
  1. SCEMBLIX [Suspect]
     Active Substance: ASCIMINIB HYDROCHLORIDE
     Indication: Chronic myeloid leukaemia
     Dosage: 40 MG, (EVERY OTHER DAY)
     Route: 048

REACTIONS (4)
  - Fall [Not Recovered/Not Resolved]
  - Pruritus [Unknown]
  - Vision blurred [Unknown]
  - Renal disorder [Unknown]
